FAERS Safety Report 13177634 (Version 2)
Quarter: 2017Q3

REPORT INFORMATION
  Report Type: Report from Study
  Country: US (occurrence: US)
  Receive Date: 20170201
  Receipt Date: 20170731
  Transmission Date: 20171127
  Serious: No
  Sender: FDA-Public Use
  Company Number: US-EXELIXIS-CABO-16006667

PATIENT
  Sex: Male

DRUGS (16)
  1. IBUPROFEN. [Concomitant]
     Active Substance: IBUPROFEN
  2. CABOMETYX [Suspect]
     Active Substance: CABOZANTINIB S-MALATE
     Indication: RENAL CANCER
     Dosage: 60 MG, QD
     Route: 048
     Dates: start: 20160609
  3. AMLODIPINE [Concomitant]
     Active Substance: AMLODIPINE BESYLATE
  4. VITAMIN B12 [Concomitant]
     Active Substance: CYANOCOBALAMIN
  5. CITALOPRAM [Concomitant]
     Active Substance: CITALOPRAM HYDROBROMIDE
  6. FLAXSEED [Concomitant]
     Active Substance: FLAX SEED
  7. ZYRTEC [Concomitant]
     Active Substance: CETIRIZINE HYDROCHLORIDE
  8. METOPROLOL. [Concomitant]
     Active Substance: METOPROLOL
  9. CLONIDINE. [Concomitant]
     Active Substance: CLONIDINE
  10. FLONASE [Concomitant]
     Active Substance: FLUTICASONE PROPIONATE
  11. HEART FACTOR [Concomitant]
  12. ARMOUR THYROID [Concomitant]
     Active Substance: THYROID, PORCINE
  13. LORAZEPAM. [Concomitant]
     Active Substance: LORAZEPAM
  14. NORCO [Concomitant]
     Active Substance: ACETAMINOPHEN\HYDROCODONE BITARTRATE
  15. GLUCOBALANCE [Concomitant]
  16. MONTELUKAST [Concomitant]
     Active Substance: MONTELUKAST SODIUM

REACTIONS (11)
  - Erythema [Not Recovered/Not Resolved]
  - Abdominal discomfort [Unknown]
  - Blood pressure abnormal [Unknown]
  - Diarrhoea [Unknown]
  - Skin irritation [Unknown]
  - Pain [Unknown]
  - Arthralgia [Unknown]
  - Dry mouth [Not Recovered/Not Resolved]
  - Abdominal pain upper [Unknown]
  - Temperature intolerance [Not Recovered/Not Resolved]
  - Headache [Unknown]
